FAERS Safety Report 8315815-7 (Version None)
Quarter: 2012Q2

REPORT INFORMATION
  Report Type: 
  Country: None (occurrence: None)
  Receive Date: 20120427
  Receipt Date: 20120417
  Transmission Date: 20120825
  Serious: Yes (Other)
  Sender: FDA-Public Use
  Company Number: DE-AMGEN-DEUSP2012025217

PATIENT
  Age: 38 Year
  Sex: Male

DRUGS (2)
  1. ENBREL [Suspect]
     Indication: PSORIATIC ARTHROPATHY
     Dosage: 50 MG, WEEKLY
     Dates: start: 20111205
  2. IBUPROFEN [Suspect]
     Dosage: UNK

REACTIONS (2)
  - RENAL DISORDER [None]
  - HEPATIC ENZYME INCREASED [None]
